FAERS Safety Report 12991393 (Version 1)
Quarter: 2016Q4

REPORT INFORMATION
  Report Type: Spontaneous
  Country: US (occurrence: US)
  Receive Date: 20161201
  Receipt Date: 20161201
  Transmission Date: 20170207
  Serious: Yes (Other)
  Sender: FDA-Public Use
  Company Number: US-PFIZER INC-2016546079

PATIENT
  Sex: Female

DRUGS (2)
  1. EFFEXOR XR [Suspect]
     Active Substance: VENLAFAXINE HYDROCHLORIDE
     Indication: SLEEP DISORDER
     Dosage: 225 MG, DAILY
     Dates: start: 2001
  2. EFFEXOR XR [Suspect]
     Active Substance: VENLAFAXINE HYDROCHLORIDE
     Indication: ANXIETY

REACTIONS (14)
  - Tinnitus [Unknown]
  - Intentional product use issue [Unknown]
  - Insomnia [Unknown]
  - Bipolar disorder [Unknown]
  - Anxiety [Unknown]
  - Dry mouth [Unknown]
  - Condition aggravated [Unknown]
  - Confusional state [Unknown]
  - Dyspnoea [Unknown]
  - Mood altered [Unknown]
  - Somnolence [Unknown]
  - Depression [Unknown]
  - Abnormal behaviour [Unknown]
  - Abnormal dreams [Unknown]
